FAERS Safety Report 5479272-0 (Version None)
Quarter: 2007Q4

REPORT INFORMATION
  Report Type: 
  Country: None (occurrence: None)
  Receive Date: 20071008
  Receipt Date: 20071003
  Transmission Date: 20080405
  Serious: Yes (Hospitalization)
  Sender: FDA-Public Use
  Company Number: US-BRISTOL-MYERS SQUIBB COMPANY-13908264

PATIENT
  Age: 51 Year
  Sex: Male
  Weight: 56 kg

DRUGS (3)
  1. CISPLATIN [Suspect]
     Indication: LARYNGEAL CANCER
     Dosage: HAD 165MG(100MG/M2)ON 20-SEP-07.HELD ON 10-SEP-07 DUE TO NEUTROPENIA.
     Dates: start: 20070918, end: 20070918
  2. CETUXIMAB [Suspect]
     Indication: LARYNGEAL CANCER
     Dosage: ON 13-SEP-07 DOSE=660MG,400MG/M2.2312MG(400MG/M2 LOADING DOSE AND 250MG/M2 SUBSEQUENT INFUSIONS.
     Dates: start: 20070918, end: 20070918
  3. RADIATION THERAPY [Suspect]
     Dosage: 1 DOSAGE FORM=58GY. HAD TOTAL OF 36GY IN 22 ELAPSED DAYS FROM 20-AUG-07 TO 11-SEP-07.
     Dates: start: 20070921, end: 20070921

REACTIONS (5)
  - ANOREXIA [None]
  - DEHYDRATION [None]
  - NEUTROPENIA [None]
  - STOMATITIS [None]
  - WHITE BLOOD CELL COUNT DECREASED [None]
